FAERS Safety Report 9497247 (Version 1)
Quarter: 2013Q3

REPORT INFORMATION
  Report Type: Spontaneous
  Country: MX (occurrence: MX)
  Receive Date: 20130904
  Receipt Date: 20130904
  Transmission Date: 20140515
  Serious: Yes (Other)
  Sender: FDA-Public Use
  Company Number: PHHY2013MX096762

PATIENT
  Age: 5 Year
  Sex: Male

DRUGS (4)
  1. TRILEPTAL [Suspect]
     Indication: CONVULSION
     Dosage: 0.5 DF DAILY
     Route: 048
     Dates: start: 20130725, end: 20130901
  2. TRILEPTAL [Suspect]
     Dosage: 0.75 DF DAILY
     Route: 048
     Dates: start: 20130901
  3. ATOMOXETINE [Concomitant]
     Indication: ANXIETY
     Dosage: 1 DF DAILY
     Dates: start: 201306
  4. LEVOTHYROXINE NA [Concomitant]
     Indication: HYPOTHYROIDISM
     Dosage: 50 MG DAILY
     Dates: start: 201208

REACTIONS (2)
  - Convulsion [Not Recovered/Not Resolved]
  - Autism [Not Recovered/Not Resolved]
